FAERS Safety Report 8845984 (Version 2)
Quarter: 2015Q2

REPORT INFORMATION
  Report Type: Report from Study
  Country: US (occurrence: US)
  Receive Date: 20121017
  Receipt Date: 20150402
  Transmission Date: 20150821
  Serious: Yes (Death)
  Sender: FDA-Public Use
  Company Number: US-ROCHE-1127628

PATIENT
  Age: 46 Year
  Sex: Female

DRUGS (21)
  1. PREVACID [Concomitant]
     Active Substance: LANSOPRAZOLE
  2. CARAFATE [Concomitant]
     Active Substance: SUCRALFATE
     Route: 048
  3. MELATONIN [Concomitant]
     Active Substance: MELATONIN
  4. CARBOPLATIN. [Concomitant]
     Active Substance: CARBOPLATIN
  5. CISPLATIN. [Concomitant]
     Active Substance: CISPLATIN
  6. NEUPOGEN [Concomitant]
     Active Substance: FILGRASTIM
     Indication: NEUTROPENIA
     Route: 065
  7. ZINC CITRATE [Concomitant]
     Active Substance: ZINC CITRATE
  8. TAXOL [Concomitant]
     Active Substance: PACLITAXEL
  9. IRINOTECAN [Concomitant]
     Active Substance: IRINOTECAN
  10. MARINOL (UNITED STATES) [Concomitant]
  11. TAXOTERE [Concomitant]
     Active Substance: DOCETAXEL
  12. LEUCOVORIN CALCIUM. [Concomitant]
     Active Substance: LEUCOVORIN CALCIUM
  13. AVASTIN [Suspect]
     Active Substance: BEVACIZUMAB
     Indication: LUNG NEOPLASM MALIGNANT
  14. XELODA [Suspect]
     Active Substance: CAPECITABINE
     Indication: OESOPHAGEAL CARCINOMA
     Dosage: TOTAL OF 6 CYCLES
     Route: 065
     Dates: start: 200710, end: 200802
  15. FLUOROURACIL. [Concomitant]
     Active Substance: FLUOROURACIL
  16. CIPROFLOXACIN. [Concomitant]
     Active Substance: CIPROFLOXACIN
  17. ACETAMINOPHEN. [Concomitant]
     Active Substance: ACETAMINOPHEN
  18. AVASTIN [Suspect]
     Active Substance: BEVACIZUMAB
     Indication: OESOPHAGEAL CARCINOMA
     Route: 065
  19. XELODA [Suspect]
     Active Substance: CAPECITABINE
     Indication: LUNG NEOPLASM MALIGNANT
     Dosage: TOTAL OF 3 CYCLES
     Route: 065
     Dates: start: 200804, end: 20080527
  20. EPIRUBICIN [Concomitant]
     Active Substance: EPIRUBICIN
  21. VITAMIN D3 [Concomitant]
     Active Substance: CHOLECALCIFEROL

REACTIONS (26)
  - Pain [Unknown]
  - Asthenia [Unknown]
  - Back pain [Unknown]
  - Diarrhoea [Unknown]
  - Fatigue [Unknown]
  - Pyrexia [Unknown]
  - Vomiting [Unknown]
  - Gastrooesophageal reflux disease [Unknown]
  - Anisocytosis [Unknown]
  - Polychromasia [Unknown]
  - Dysgeusia [Unknown]
  - Paraesthesia [Unknown]
  - Off label use [Unknown]
  - Death [Fatal]
  - Nausea [Unknown]
  - Neutropenia [Unknown]
  - Anaemia [Unknown]
  - Catheter site pain [Unknown]
  - Tenderness [Unknown]
  - Disease progression [Unknown]
  - Weight decreased [Unknown]
  - Decreased appetite [Unknown]
  - Headache [Unknown]
  - Stoma site infection [Unknown]
  - Tinnitus [Unknown]
  - Malaise [Unknown]

NARRATIVE: CASE EVENT DATE: 20090905
